FAERS Safety Report 9059346 (Version 1)
Quarter: 2013Q1

REPORT INFORMATION
  Report Type: Spontaneous
  Country: US (occurrence: US)
  Receive Date: 20130211
  Receipt Date: 20130211
  Transmission Date: 20140127
  Serious: No
  Sender: FDA-Public Use
  Company Number: US-BAYER-2013-016959

PATIENT
  Sex: Female

DRUGS (5)
  1. CLIMARA [Suspect]
     Dosage: UNK UNK, OW
     Route: 062
     Dates: start: 20130129, end: 20130203
  2. GABAPENTIN [Concomitant]
     Indication: MIGRAINE
     Dosage: UNK
     Dates: start: 2010
  3. MELOXICAM [Concomitant]
     Indication: MIGRAINE
     Dosage: UNK UNK, PRN
     Dates: start: 2010
  4. DEPAKOTE [Concomitant]
     Indication: MIGRAINE PROPHYLAXIS
     Dosage: UNK UNK, BID
  5. ZINC [ZINC] [Concomitant]
     Indication: ZINC DEFICIENCY
     Dosage: 50 MG, QD
     Dates: start: 2009

REACTIONS (1)
  - Ageusia [Not Recovered/Not Resolved]
